FAERS Safety Report 21734100 (Version 1)
Quarter: 2022Q4

REPORT INFORMATION
  Report Type: Report from Study
  Country: IT (occurrence: IT)
  Receive Date: 20221215
  Receipt Date: 20221215
  Transmission Date: 20230113
  Serious: Yes (Hospitalization)
  Sender: FDA-Public Use
  Company Number: None

PATIENT
  Age: 27 Year
  Sex: Male

DRUGS (7)
  1. QUETIAPINE [Suspect]
     Active Substance: QUETIAPINE
     Indication: Bipolar II disorder
     Dosage: TAKING 60 CP OF QUETIAPINE 25 MG, FREQUENCY TOTAL.
     Route: 048
     Dates: start: 20220523
  2. QUETIAPINE [Suspect]
     Active Substance: QUETIAPINE
     Indication: Personality disorder
  3. Tavor [Concomitant]
     Indication: Bipolar II disorder
     Dosage: UNK
     Route: 048
  4. Tavor [Concomitant]
     Indication: Personality disorder
  5. LITHIUM CARBONATE [Concomitant]
     Active Substance: LITHIUM CARBONATE
     Indication: Bipolar II disorder
     Dosage: UNK
     Route: 048
  6. ARIPIPRAZOLE [Concomitant]
     Active Substance: ARIPIPRAZOLE
     Indication: Bipolar II disorder
     Route: 048
  7. ARIPIPRAZOLE [Concomitant]
     Active Substance: ARIPIPRAZOLE
     Indication: Personality disorder

REACTIONS (3)
  - Drug abuse [Recovering/Resolving]
  - Loss of consciousness [Recovering/Resolving]
  - Suicidal ideation [Unknown]

NARRATIVE: CASE EVENT DATE: 20220523
